FAERS Safety Report 9610405 (Version 2)
Quarter: 2013Q4

REPORT INFORMATION
  Report Type: Spontaneous
  Country: US (occurrence: US)
  Receive Date: 20131009
  Receipt Date: 20131009
  Transmission Date: 20140711
  Serious: No
  Sender: FDA-Public Use
  Company Number: US-PURDUE-USA-2012-0096578

PATIENT
  Sex: Female

DRUGS (1)
  1. BUTRANS [Suspect]
     Indication: OSTEONECROSIS
     Dosage: 20 MCG, WEEKLY
     Route: 062
     Dates: start: 201209

REACTIONS (5)
  - Amenorrhoea [Unknown]
  - Application site discolouration [Not Recovered/Not Resolved]
  - Breakthrough pain [Unknown]
  - Application site reaction [Unknown]
  - Application site erythema [Unknown]
